FAERS Safety Report 24605398 (Version 2)
Quarter: 2024Q4

REPORT INFORMATION
  Report Type: Spontaneous
  Country: US (occurrence: US)
  Receive Date: 20241111
  Receipt Date: 20241122
  Transmission Date: 20250115
  Serious: No
  Sender: SANOFI AVENTIS
  Company Number: US-SA-2024SA314963

PATIENT
  Age: 16 Year
  Sex: Female

DRUGS (1)
  1. DUPIXENT [Suspect]
     Active Substance: DUPILUMAB
     Indication: Eosinophilic oesophagitis
     Dosage: 300 MG, QW
     Route: 058

REACTIONS (8)
  - Headache [Unknown]
  - Dizziness [Unknown]
  - Eye pruritus [Unknown]
  - Oral herpes [Unknown]
  - Injection site reaction [Unknown]
  - Product dose omission in error [Unknown]
  - Injection site rash [Unknown]
  - Injection site erythema [Unknown]
